FAERS Safety Report 23125355 (Version 1)
Quarter: 2023Q4

REPORT INFORMATION
  Report Type: Other
  Country: None (occurrence: US)
  Receive Date: 20231030
  Receipt Date: 20231030
  Transmission Date: 20240110
  Serious: Yes (Hospitalization)
  Sender: FDA-Public Use
  Company Number: US-B.Braun Medical Inc.-2147572

PATIENT
  Sex: Female

DRUGS (4)
  1. HEPARIN SODIUM IN DEXTROSE [Suspect]
     Active Substance: HEPARIN SODIUM
     Indication: Intracranial aneurysm
  2. CANGRELOR [Suspect]
     Active Substance: CANGRELOR
  3. TICAGRELOR [Suspect]
     Active Substance: TICAGRELOR
  4. ASPIRIN [Suspect]
     Active Substance: ASPIRIN

REACTIONS (1)
  - Drug ineffective [None]
